APPROVED DRUG PRODUCT: AMITRIPTYLINE HYDROCHLORIDE
Active Ingredient: AMITRIPTYLINE HYDROCHLORIDE
Strength: 100MG
Dosage Form/Route: TABLET;ORAL
Application: A085742 | Product #002
Applicant: MUTUAL PHARMACEUTICAL CO INC
Approved: May 11, 1982 | RLD: No | RS: No | Type: DISCN